FAERS Safety Report 19297568 (Version 1)
Quarter: 2021Q2

REPORT INFORMATION
  Report Type: Spontaneous
  Country: US (occurrence: US)
  Receive Date: 20210524
  Receipt Date: 20210524
  Transmission Date: 20210717
  Serious: Yes (Death)
  Sender: FDA-Public Use
  Company Number: US-BEXIMCO-2021BEX00023

PATIENT
  Age: 3 Month
  Sex: Female

DRUGS (7)
  1. NADOLOL. [Suspect]
     Active Substance: NADOLOL
     Dosage: 3.9 MG, 2X/DAY
     Route: 065
     Dates: start: 20151029
  2. NADOLOL. [Suspect]
     Active Substance: NADOLOL
     Dosage: 5.5 MG, 2X/DAY
     Route: 065
     Dates: start: 20151123
  3. NADOLOL. [Suspect]
     Active Substance: NADOLOL
     Dosage: 1.3 MG
     Route: 065
     Dates: start: 201510
  4. NADOLOL. [Suspect]
     Active Substance: NADOLOL
     Indication: INFANTILE HAEMANGIOMA
     Dosage: 0.25 MG/KG, 2X/DAY
     Route: 065
     Dates: start: 201510
  5. NADOLOL. [Suspect]
     Active Substance: NADOLOL
     Dosage: 2.0 MG/KG, 2X/DAY
     Route: 065
     Dates: start: 201510
  6. NADOLOL. [Suspect]
     Active Substance: NADOLOL
     Dosage: 2.6 UNK
     Route: 065
     Dates: start: 20151025
  7. NADOLOL. [Suspect]
     Active Substance: NADOLOL
     Dosage: 5.0 MG, 2X/DAY
     Route: 065
     Dates: start: 20151102

REACTIONS (1)
  - Cardiotoxicity [Fatal]

NARRATIVE: CASE EVENT DATE: 20151205
